FAERS Safety Report 10045669 (Version 1)
Quarter: 2014Q1

REPORT INFORMATION
  Report Type: Spontaneous
  Country: US (occurrence: US)
  Receive Date: 20140328
  Receipt Date: 20140328
  Transmission Date: 20141002
  Serious: Yes (Other)
  Sender: FDA-Public Use
  Company Number: ALCN2014US001906

PATIENT
  Sex: Male

DRUGS (3)
  1. TIMOLOL FALCON [Suspect]
     Indication: GLAUCOMA
     Dosage: 1 GTT, BID
     Route: 047
  2. LISINOPRIL [Concomitant]
     Indication: HEART RATE DECREASED
     Dosage: 1 TABLET, BID
     Route: 048
  3. CARVEDILOL [Concomitant]
     Indication: HEART RATE DECREASED
     Dosage: 1 DF, BID
     Route: 048

REACTIONS (4)
  - Heart rate decreased [Not Recovered/Not Resolved]
  - Fatigue [Not Recovered/Not Resolved]
  - Chest pain [Not Recovered/Not Resolved]
  - Pain in extremity [Not Recovered/Not Resolved]
